FAERS Safety Report 22109341 (Version 1)
Quarter: 2023Q1

REPORT INFORMATION
  Report Type: Spontaneous
  Country: US (occurrence: None)
  Receive Date: 20230316
  Receipt Date: 20230316
  Transmission Date: 20230418
  Serious: Yes (Hospitalization)
  Sender: FDA-Public Use
  Company Number: None

PATIENT
  Age: 75 Year
  Sex: Male
  Weight: 88.72 kg

DRUGS (25)
  1. LENALIDOMIDE [Suspect]
     Active Substance: LENALIDOMIDE
     Indication: Prostate cancer
     Dosage: FREQUENCY : DAILY;?
     Route: 048
  2. CARBIDOPA [Concomitant]
     Active Substance: CARBIDOPA
  3. LEVODOPA [Concomitant]
     Active Substance: LEVODOPA
  4. CLOPIDEOGREL [Concomitant]
  5. DICLOFENAC [Concomitant]
     Active Substance: DICLOFENAC
  6. DEPAKOTE [Concomitant]
     Active Substance: DIVALPROEX SODIUM
  7. DONEPEZIL [Concomitant]
     Active Substance: DONEPEZIL
  8. ELIQUIS [Concomitant]
     Active Substance: APIXABAN
  9. ESCITALOPRAM [Concomitant]
     Active Substance: ESCITALOPRAM OXALATE
  10. FAMOTIDINE [Concomitant]
     Active Substance: FAMOTIDINE
  11. FOLIC ACID [Concomitant]
     Active Substance: FOLIC ACID
  12. IMODIUM AD [Concomitant]
     Active Substance: LOPERAMIDE HYDROCHLORIDE
  13. METOPROLOL [Concomitant]
     Active Substance: METOPROLOL
  14. MINOCYCLINE [Concomitant]
     Active Substance: MINOCYCLINE HYDROCHLORIDE
  15. NITROGLYCERIN [Concomitant]
     Active Substance: NITROGLYCERIN
  16. ONDANSETRON [Concomitant]
     Active Substance: ONDANSETRON
  17. POTASSIUM CHLORIDE [Concomitant]
     Active Substance: POTASSIUM CHLORIDE
  18. REMERON [Concomitant]
     Active Substance: MIRTAZAPINE
  19. ROSUVASTATIN [Concomitant]
     Active Substance: ROSUVASTATIN
  20. TAMSULOSIN [Concomitant]
     Active Substance: TAMSULOSIN
  21. TRAMADOL [Concomitant]
     Active Substance: TRAMADOL
  22. TRAZODONE [Concomitant]
     Active Substance: TRAZODONE HYDROCHLORIDE
  23. TUMS [Concomitant]
     Active Substance: CALCIUM CARBONATE
  24. TYLENOL [Concomitant]
     Active Substance: ACETAMINOPHEN
  25. VITAMIN D [Concomitant]
     Active Substance: VITAMIN D NOS

REACTIONS (1)
  - Hospitalisation [None]
